FAERS Safety Report 7416487-6 (Version None)
Quarter: 2011Q2

REPORT INFORMATION
  Report Type: 
  Country: None (occurrence: None)
  Receive Date: 20110414
  Receipt Date: 20110412
  Transmission Date: 20111010
  Serious: Yes (Hospitalization, Other)
  Sender: FDA-Public Use
  Company Number: US-PFIZER INC-2011067425

PATIENT
  Sex: Female
  Weight: 57.143 kg

DRUGS (3)
  1. PREDNISOLONE [Concomitant]
     Dosage: UNK
  2. CHANTIX [Suspect]
     Indication: SMOKING CESSATION THERAPY
     Dosage: UNK
     Route: 048
     Dates: start: 20090101, end: 20100101
  3. CORTISONE [Concomitant]
     Dosage: UNK

REACTIONS (9)
  - SUICIDE ATTEMPT [None]
  - DEPRESSION [None]
  - HEARING IMPAIRED [None]
  - NIGHT BLINDNESS [None]
  - PHYSICAL ASSAULT [None]
  - VISUAL IMPAIRMENT [None]
  - ROAD TRAFFIC ACCIDENT [None]
  - DYSPNOEA [None]
  - BREAST MASS [None]
